FAERS Safety Report 6709529-4 (Version None)
Quarter: 2010Q2

REPORT INFORMATION
  Report Type: 
  Country: None (occurrence: None)
  Receive Date: 20100504
  Receipt Date: 20100428
  Transmission Date: 20101027
  Serious: Yes (Other)
  Sender: FDA-Public Use
  Company Number: IT-BAYER-201023790GPV

PATIENT

DRUGS (3)
  1. DACARBAZINE [Suspect]
     Indication: METASTATIC MALIGNANT MELANOMA
  2. THYMOSIN ALPHA 1 [Suspect]
     Indication: METASTATIC MALIGNANT MELANOMA
  3. INTERFERON ALFA [Suspect]
     Indication: METASTATIC MALIGNANT MELANOMA

REACTIONS (1)
  - HAEMATEMESIS [None]
